FAERS Safety Report 7176322-0 (Version None)
Quarter: 2010Q4

REPORT INFORMATION
  Report Type: 
  Country: None (occurrence: None)
  Receive Date: 20101220
  Receipt Date: 20101213
  Transmission Date: 20110411
  Serious: No
  Sender: FDA-Public Use
  Company Number: US-PFIZER INC-2010171015

PATIENT
  Sex: Female

DRUGS (1)
  1. DETROL LA [Suspect]
     Dosage: 4 MG, UNK
     Route: 048

REACTIONS (2)
  - DRUG INEFFECTIVE [None]
  - URINARY INCONTINENCE [None]
